FAERS Safety Report 6207241-1 (Version None)
Quarter: 2009Q2

REPORT INFORMATION
  Report Type: 
  Country: None (occurrence: None)
  Receive Date: 20090528
  Receipt Date: 20090518
  Transmission Date: 20091009
  Serious: Yes (Hospitalization)
  Sender: FDA-Public Use
  Company Number: JP-CELGENEUS-087-50794-08120924

PATIENT
  Sex: Male

DRUGS (25)
  1. VIDAZA [Suspect]
     Route: 051
     Dates: start: 20081203, end: 20081209
  2. VIDAZA [Suspect]
     Route: 065
     Dates: start: 20090409, end: 20090415
  3. SENNOSIDE [Suspect]
     Indication: CONSTIPATION
     Route: 048
  4. RABEPRAZOLE SODIUM [Suspect]
     Indication: PROPHYLAXIS
     Route: 048
  5. CARBOCISTEINE [Suspect]
     Route: 048
  6. CARBOCISTEINE [Suspect]
     Indication: PROPHYLAXIS
  7. CLARITHROMYCIN [Suspect]
     Route: 048
  8. CLARITHROMYCIN [Suspect]
     Indication: PROPHYLAXIS
  9. MAGNESIUM OXIDE [Suspect]
     Indication: CONSTIPATION
     Route: 048
  10. SODIUM PICOSULFATE [Suspect]
     Indication: CONSTIPATION
     Route: 048
     Dates: start: 20081207, end: 20081211
  11. MEROPENEM TRIHYDRATE [Suspect]
     Indication: INFECTION PROPHYLAXIS
     Route: 051
  12. VANCOMYCIN HYDROCHLORIDE [Suspect]
     Indication: INFECTION PROPHYLAXIS
     Route: 051
  13. COLIBACILLUS VACCINE/HYDROCORTISONE [Concomitant]
     Indication: HAEMORRHOIDS
     Route: 054
     Dates: start: 20081209, end: 20081214
  14. ISOTONIC SODIUM CHLORIDE SOLUTION [Concomitant]
     Indication: DRUG USE FOR UNKNOWN INDICATION
     Route: 051
  15. POTASSIUM CHLORIDE [Concomitant]
     Indication: HYPOKALAEMIA
     Route: 051
  16. DIPHENHYDRAMINE HCL [Concomitant]
     Indication: ECZEMA ASTEATOTIC
     Dosage: PROPER QUANTITY
  17. WHITE PETROLATUM [Concomitant]
     Indication: DRY SKIN PROPHYLAXIS
  18. HYDROCORTISONE ACETATE [Concomitant]
     Indication: ECZEMA
     Dosage: PROPER QUANTITY
  19. MOMETASONE FUROATE [Concomitant]
     Indication: ECZEMA
     Dosage: PROPER QUANTITY
  20. AZULENE SULFONATE SODIUM [Concomitant]
     Indication: INFECTION PROPHYLAXIS
     Dosage: PROPER QUANTITY
     Route: 048
  21. CEPHEPIME DIHYDROCHLORIDE [Concomitant]
     Indication: INFECTION PROPHYLAXIS
     Route: 048
     Dates: start: 20090510
  22. ACETAMINOPHEN [Concomitant]
     Indication: COMPRESSION FRACTURE
     Route: 048
  23. OXYCODONE HYDROCHLORIDE [Concomitant]
     Indication: COMPRESSION FRACTURE
     Route: 048
  24. OXYCODONE HYDROCHLORIDE [Concomitant]
     Route: 048
  25. BROTIZOLAM [Concomitant]
     Route: 048

REACTIONS (3)
  - FEBRILE NEUTROPENIA [None]
  - GASTRIC ULCER [None]
  - URINARY RETENTION [None]
